FAERS Safety Report 15705999 (Version 2)
Quarter: 2019Q1

REPORT INFORMATION
  Report Type: Spontaneous
  Country: GB (occurrence: GB)
  Receive Date: 20181210
  Receipt Date: 20190111
  Transmission Date: 20190417
  Serious: Yes (Other)
  Sender: FDA-Public Use
  Company Number: GB-TEVA-2018-GB-984237

PATIENT
  Sex: Male

DRUGS (2)
  1. MERONEM [Suspect]
     Active Substance: MEROPENEM
     Indication: CENTRAL NERVOUS SYSTEM INFECTION
     Route: 042
  2. PHENYTOIN. [Suspect]
     Active Substance: PHENYTOIN
     Route: 065

REACTIONS (1)
  - Neutropenia [Recovering/Resolving]
